FAERS Safety Report 13607639 (Version 1)
Quarter: 2017Q2

REPORT INFORMATION
  Report Type: Spontaneous
  Country: AU (occurrence: AU)
  Receive Date: 20170602
  Receipt Date: 20170602
  Transmission Date: 20170830
  Serious: Yes (Other)
  Sender: FDA-Public Use
  Company Number: AU-TEVA-773219ROM

PATIENT
  Age: 5 Decade
  Sex: Male

DRUGS (2)
  1. RISPERIDONE. [Suspect]
     Active Substance: RISPERIDONE
     Indication: SCHIZOPHRENIA
     Route: 065
     Dates: end: 2012
  2. ARIPIPRAZOLE. [Suspect]
     Active Substance: ARIPIPRAZOLE
     Indication: SCHIZOPHRENIA
     Dosage: 10 MILLIGRAM DAILY;
     Route: 065

REACTIONS (6)
  - Intentional self-injury [Unknown]
  - Intentional overdose [Unknown]
  - Gambling disorder [Unknown]
  - Impulse-control disorder [Unknown]
  - Suicide attempt [Unknown]
  - Priapism [Unknown]

NARRATIVE: CASE EVENT DATE: 2012
